FAERS Safety Report 7283418-1 (Version None)
Quarter: 2011Q1

REPORT INFORMATION
  Report Type: 
  Country: None (occurrence: None)
  Receive Date: 20110209
  Receipt Date: 20101015
  Transmission Date: 20110831
  Serious: No
  Sender: FDA-Public Use
  Company Number: A0887089A

PATIENT
  Age: 37 Year
  Sex: Male

DRUGS (8)
  1. CLONAZEPAM [Concomitant]
  2. LOSARTAN POTASSIUM [Concomitant]
  3. ADDERALL 10 [Concomitant]
  4. PAROXETINE HCL [Suspect]
     Indication: ANXIETY
     Dosage: 50MG PER DAY
     Route: 048
     Dates: start: 20090101
  5. LIPITOR [Concomitant]
  6. BUPROPION [Concomitant]
  7. PAXIL [Suspect]
     Indication: ANXIETY
     Dosage: 40MG PER DAY
     Route: 048
  8. ALLOPURINOL [Concomitant]

REACTIONS (1)
  - FATIGUE [None]
